FAERS Safety Report 4330659-9 (Version None)
Quarter: 2004Q2

REPORT INFORMATION
  Report Type: 
  Country: None (occurrence: None)
  Receive Date: 20040402
  Receipt Date: 20040114
  Transmission Date: 20050107
  Serious: Yes (Other)
  Sender: FDA-Public Use
  Company Number: FR-GLAXOSMITHKLINE-B0319933A

PATIENT
  Age: 52 Year
  Sex: Male
  Weight: 116 kg

DRUGS (4)
  1. AVANDIA [Suspect]
     Dosage: 4MG PER DAY
     Route: 048
     Dates: start: 20031001, end: 20040110
  2. DIAMICRON [Concomitant]
     Dosage: 30MG PER DAY
     Route: 048
     Dates: start: 20011103
  3. TARKA [Concomitant]
     Indication: HYPERTENSION
     Dosage: 1CAP PER DAY
     Route: 048
     Dates: start: 20031114
  4. ZOCOR [Concomitant]
     Dosage: 20MG PER DAY
     Route: 048

REACTIONS (2)
  - CYTOLYTIC HEPATITIS [None]
  - GAMMA-GLUTAMYLTRANSFERASE INCREASED [None]
